FAERS Safety Report 4852575-6 (Version None)
Quarter: 2005Q4

REPORT INFORMATION
  Report Type: 
  Country: None (occurrence: None)
  Receive Date: 20051125
  Receipt Date: 20050831
  Transmission Date: 20060501
  Serious: Yes (Other)
  Sender: FDA-Public Use
  Company Number: 2005115908

PATIENT
  Age: 58 Year
  Sex: Female
  Weight: 86.1834 kg

DRUGS (4)
  1. TIKOSYN [Suspect]
     Indication: ATRIAL FIBRILLATION
     Dosage: 1000 MCG (500 MCG, BID INTERVAL:  EVERYDAY), ORAL
     Route: 048
     Dates: start: 20050719
  2. COUMADIN [Concomitant]
  3. SYNTHROID [Concomitant]
  4. NEXIUM [Concomitant]

REACTIONS (2)
  - HEART RATE IRREGULAR [None]
  - TREMOR [None]
